FAERS Safety Report 7658873-5 (Version None)
Quarter: 2011Q3

REPORT INFORMATION
  Report Type: 
  Country: None (occurrence: None)
  Receive Date: 20110804
  Receipt Date: 20110804
  Transmission Date: 20111222
  Serious: Yes (Other)
  Sender: FDA-Public Use
  Company Number: None

PATIENT
  Age: 47 Year
  Sex: Female
  Weight: 67.1324 kg

DRUGS (1)
  1. TRAZODONE HCL [Suspect]
     Indication: ANXIETY
     Dosage: 1 AT BEDTIME
     Dates: start: 20110707, end: 20110712

REACTIONS (12)
  - DECREASED APPETITE [None]
  - FATIGUE [None]
  - DEPRESSION [None]
  - HYPOAESTHESIA [None]
  - CONTUSION [None]
  - CHEST PAIN [None]
  - DIZZINESS [None]
  - NAUSEA [None]
  - PHOTOPHOBIA [None]
  - SINUS DISORDER [None]
  - CONFUSIONAL STATE [None]
  - MUSCLE TIGHTNESS [None]
